FAERS Safety Report 8616410-2 (Version None)
Quarter: 2012Q3

REPORT INFORMATION
  Report Type: 
  Country: None (occurrence: None)
  Receive Date: 20120823
  Receipt Date: 20120820
  Transmission Date: 20120928
  Serious: Yes (Death, Other)
  Sender: FDA-Public Use
  Company Number: US-AMGEN-USASP2012035297

PATIENT
  Age: 55 Year
  Sex: Male

DRUGS (1)
  1. XGEVA [Suspect]
     Indication: METASTASES TO BONE
     Dosage: 120 MG, QMO
     Route: 058
     Dates: start: 20110201, end: 20110501

REACTIONS (2)
  - NON-SMALL CELL LUNG CANCER STAGE IV [None]
  - OSTEONECROSIS OF JAW [None]
